FAERS Safety Report 9341185 (Version 2)
Quarter: 2013Q2

REPORT INFORMATION
  Report Type: Spontaneous
  Country: JP (occurrence: JP)
  Receive Date: 20130611
  Receipt Date: 20130628
  Transmission Date: 20140414
  Serious: Yes (Other)
  Sender: FDA-Public Use
  Company Number: JP-B.I. PHARMACEUTICALS,INC./RIDGEFIELD-2013-BI-16377NB

PATIENT
  Age: 72 Year
  Sex: Male
  Weight: 69 kg

DRUGS (6)
  1. PRAZAXA [Suspect]
     Indication: ATRIAL FIBRILLATION
     Dosage: 220 MG
     Route: 048
     Dates: start: 20121112, end: 20130327
  2. NEXIUM [Suspect]
     Indication: OESOPHAGEAL ULCER
     Dosage: 20 MG
     Route: 048
     Dates: start: 20121207, end: 20130327
  3. GASCON [Suspect]
     Indication: ABDOMINAL SYMPTOM
     Dosage: 120 MG
     Route: 048
     Dates: start: 20121212, end: 20130327
  4. PANTOSIN [Suspect]
     Indication: CONSTIPATION
     Dosage: 90 MG
     Route: 048
     Dates: start: 20121212, end: 20130327
  5. MAINTATE [Concomitant]
     Dosage: 5 MG
     Route: 048
     Dates: start: 20120827
  6. SUNRYTHM [Concomitant]
     Route: 065
     Dates: start: 20121001

REACTIONS (1)
  - Platelet count decreased [Not Recovered/Not Resolved]
